FAERS Safety Report 10222375 (Version 1)
Quarter: 2014Q2

REPORT INFORMATION
  Report Type: Spontaneous
  Country: DE (occurrence: DE)
  Receive Date: 20140606
  Receipt Date: 20140606
  Transmission Date: 20141212
  Serious: Yes (Other)
  Sender: FDA-Public Use
  Company Number: DE-WATSON-2014-05890

PATIENT
  Age: 53 Year
  Sex: Female
  Weight: 71 kg

DRUGS (4)
  1. CITALOPRAM (UNKNOWN) [Suspect]
     Indication: DEPRESSION
     Dosage: 30 MG, DAILY
     Route: 048
     Dates: start: 2008, end: 20140211
  2. VALPROAT [Concomitant]
     Indication: BIPOLAR DISORDER
     Dosage: 600 MG, UNK
     Route: 048
     Dates: start: 2009
  3. LYRICA [Concomitant]
     Indication: PRODUCT USED FOR UNKNOWN INDICATION
     Dosage: 300 MG, UNK
     Route: 048
  4. TRUXAL                             /00012101/ [Concomitant]
     Indication: SLEEP DISORDER
     Dosage: 100 MG, UNK
     Route: 048
     Dates: start: 2008

REACTIONS (1)
  - Electrocardiogram QT prolonged [Recovered/Resolved]
